FAERS Safety Report 12927650 (Version 2)
Quarter: 2017Q1

REPORT INFORMATION
  Report Type: Spontaneous
  Country: US (occurrence: US)
  Receive Date: 20161109
  Receipt Date: 20170109
  Transmission Date: 20170428
  Serious: Yes (Other)
  Sender: FDA-Public Use
  Company Number: US-BRISTOL-MYERS SQUIBB COMPANY-BMS-2016-088337

PATIENT
  Sex: Female

DRUGS (2)
  1. YERVOY [Suspect]
     Active Substance: IPILIMUMAB
     Indication: MALIGNANT MELANOMA
     Dosage: UNK
     Route: 042
     Dates: start: 201501, end: 201506
  2. OPDIVO [Suspect]
     Active Substance: NIVOLUMAB
     Indication: MALIGNANT MELANOMA
     Dosage: UNK
     Route: 042
     Dates: start: 201506

REACTIONS (15)
  - Musculoskeletal stiffness [Unknown]
  - Insomnia [Unknown]
  - Hernia repair [Unknown]
  - Chest pain [Recovered/Resolved]
  - Fatigue [Unknown]
  - Neuropathy peripheral [Unknown]
  - Myalgia [Unknown]
  - Alopecia [Recovered/Resolved]
  - Joint swelling [Not Recovered/Not Resolved]
  - Arthralgia [Unknown]
  - Eye irritation [Unknown]
  - Macular degeneration [Unknown]
  - Asthenopia [Unknown]
  - Neck pain [Recovered/Resolved]
  - Rash [Recovered/Resolved]
